FAERS Safety Report 18349663 (Version 1)
Quarter: 2020Q4

REPORT INFORMATION
  Report Type: Spontaneous
  Country: US (occurrence: US)
  Receive Date: 20201006
  Receipt Date: 20201006
  Transmission Date: 20210114
  Serious: Yes (Other)
  Sender: FDA-Public Use
  Company Number: None

PATIENT
  Age: 57 Year
  Sex: Female
  Weight: 134.1 kg

DRUGS (2)
  1. SANTIHAND [Suspect]
     Active Substance: ALCOHOL
     Indication: COVID-19 PROPHYLAXIS
     Route: 061
     Dates: start: 20201004, end: 20201004
  2. MULTIVITAMINS [Concomitant]
     Active Substance: VITAMINS

REACTIONS (2)
  - Application site burn [None]
  - Application site exfoliation [None]

NARRATIVE: CASE EVENT DATE: 20201004
